FAERS Safety Report 24093090 (Version 3)
Quarter: 2024Q3

REPORT INFORMATION
  Report Type: Other
  Country: US (occurrence: US)
  Receive Date: 20240715
  Receipt Date: 20240917
  Transmission Date: 20241017
  Serious: No
  Sender: TRAVERE THERAPEUTICS
  Company Number: US-TRAVERE-2024TVT00567

PATIENT
  Age: 22 Year
  Sex: Male
  Weight: 92.99 kg

DRUGS (11)
  1. FILSPARI [Suspect]
     Active Substance: SPARSENTAN
     Indication: IgA nephropathy
     Route: 048
     Dates: start: 202405
  2. FILSPARI [Suspect]
     Active Substance: SPARSENTAN
     Indication: Haematuria
  3. ATORVASTATIN CALCIUM [Concomitant]
     Active Substance: ATORVASTATIN CALCIUM
  4. NIFEDIPINE [Concomitant]
     Active Substance: NIFEDIPINE
  5. PROGRAF [Concomitant]
     Active Substance: TACROLIMUS
  6. FLUOXETINE HYDROCHLORIDE [Concomitant]
     Active Substance: FLUOXETINE HYDROCHLORIDE
  7. COENZYME Q10 [Concomitant]
     Active Substance: DIETARY SUPPLEMENT\UBIDECARENONE
  8. VITAMIN B12 [Concomitant]
     Active Substance: CYANOCOBALAMIN
  9. METOPROLOL SUCCINATE [Concomitant]
     Active Substance: METOPROLOL SUCCINATE
  10. MAGNESIUM [Concomitant]
     Active Substance: MAGNESIUM
  11. FISH OIL-VIT D3 [Concomitant]

REACTIONS (3)
  - Diarrhoea [None]
  - Abdominal pain upper [Unknown]
  - Gastrointestinal disorder [Unknown]
